FAERS Safety Report 5842234-5 (Version None)
Quarter: 2008Q3

REPORT INFORMATION
  Report Type: 
  Country: None (occurrence: None)
  Receive Date: 20080731
  Receipt Date: 20080604
  Transmission Date: 20090109
  Serious: No
  Sender: FDA-Public Use
  Company Number: US200801002238

PATIENT
  Age: 55 Year
  Sex: Male
  Weight: 102.9 kg

DRUGS (11)
  1. BYETTA [Suspect]
     Indication: TYPE 2 DIABETES MELLITUS
     Dosage: 5 UG, 2/D, SUBCUTANEOUS, 5 UG, 2/D, 10 UG, 2/D, SUBCUTANEOUS, 5 UG, 2/D, SUBCUTANEOUS
     Route: 058
     Dates: start: 20080101, end: 20080101
  2. BYETTA [Suspect]
     Indication: TYPE 2 DIABETES MELLITUS
     Dosage: 5 UG, 2/D, SUBCUTANEOUS, 5 UG, 2/D, 10 UG, 2/D, SUBCUTANEOUS, 5 UG, 2/D, SUBCUTANEOUS
     Route: 058
     Dates: start: 20071001
  3. BYETTA [Suspect]
     Indication: TYPE 2 DIABETES MELLITUS
     Dosage: 5 UG, 2/D, SUBCUTANEOUS, 5 UG, 2/D, 10 UG, 2/D, SUBCUTANEOUS, 5 UG, 2/D, SUBCUTANEOUS
     Route: 058
     Dates: start: 20071201
  4. BYETTA [Suspect]
     Indication: TYPE 2 DIABETES MELLITUS
     Dosage: 5 UG, 2/D, SUBCUTANEOUS, 5 UG, 2/D, 10 UG, 2/D, SUBCUTANEOUS, 5 UG, 2/D, SUBCUTANEOUS
     Route: 058
     Dates: start: 20080101
  5. BYETTA [Suspect]
  6. BYETTA [Suspect]
  7. EXENATIDE PEN, DISPOSABLE DEVICE (EXENATIDE PEN)) PEN,DISPOSABLE [Concomitant]
  8. ACTOS [Concomitant]
  9. LIPITOR [Concomitant]
  10. LISINOPRIL [Concomitant]
  11. OMEPRAZOLE [Concomitant]

REACTIONS (10)
  - ASTHENIA [None]
  - BLOOD GLUCOSE DECREASED [None]
  - BLOOD GLUCOSE INCREASED [None]
  - FATIGUE [None]
  - HEADACHE [None]
  - INFREQUENT BOWEL MOVEMENTS [None]
  - NAUSEA [None]
  - TINNITUS [None]
  - URINE OUTPUT DECREASED [None]
  - WEIGHT DECREASED [None]
